FAERS Safety Report 14922089 (Version 1)
Quarter: 2018Q2

REPORT INFORMATION
  Report Type: Spontaneous
  Country: US (occurrence: US)
  Receive Date: 20180522
  Receipt Date: 20180522
  Transmission Date: 20180711
  Serious: No
  Sender: FDA-Public Use
  Company Number: US-TEVA-807008ACC

PATIENT
  Sex: Female

DRUGS (1)
  1. SOTALOL. [Suspect]
     Active Substance: SOTALOL
     Route: 065

REACTIONS (3)
  - Balance disorder [Unknown]
  - Dizziness [Unknown]
  - Headache [Unknown]
